FAERS Safety Report 9436495 (Version 3)
Quarter: 2013Q3

REPORT INFORMATION
  Report Type: Report from Study
  Country: CA (occurrence: CA)
  Receive Date: 20130802
  Receipt Date: 20130813
  Transmission Date: 20140515
  Serious: Yes (Other)
  Sender: FDA-Public Use
  Company Number: CA-ROCHE-1033555

PATIENT
  Age: 74 Year
  Sex: Female
  Weight: 31.92 kg

DRUGS (12)
  1. RITUXAN [Suspect]
     Indication: RHEUMATOID ARTHRITIS
     Dosage: MOST RECENT DOSE ON 18/MAR/2013
     Route: 042
     Dates: start: 20090714
  2. AVAPRO [Concomitant]
  3. FERROUS SULFATE [Concomitant]
     Dosage: DRUG NAME: EUROFER
     Route: 065
  4. ZOCOR [Concomitant]
  5. PREVACID [Concomitant]
  6. TYLENOL ARTHRITIS [Concomitant]
     Route: 065
  7. OMEGA-3 [Concomitant]
  8. SYNTHROID [Concomitant]
  9. ACETAMINOPHEN [Concomitant]
     Route: 048
     Dates: start: 20111022, end: 20111022
  10. TYLENOL [Concomitant]
     Indication: PREMEDICATION
     Route: 048
     Dates: start: 20090714
  11. BENADRYL (CANADA) [Concomitant]
     Indication: PREMEDICATION
     Route: 048
     Dates: start: 20090714
  12. SOLU-MEDROL [Concomitant]
     Indication: PREMEDICATION
     Route: 042
     Dates: start: 20090714

REACTIONS (3)
  - Osteoporosis [Not Recovered/Not Resolved]
  - Colon cancer [Unknown]
  - Local swelling [Recovering/Resolving]
